FAERS Safety Report 5164435-4 (Version None)
Quarter: 2006Q4

REPORT INFORMATION
  Report Type: 
  Country: None (occurrence: None)
  Receive Date: 20061205
  Receipt Date: 20061124
  Transmission Date: 20070319
  Serious: Yes (Hospitalization)
  Sender: FDA-Public Use
  Company Number: CA-JNJFOC-20061105818

PATIENT
  Age: 85 Year
  Sex: Female

DRUGS (9)
  1. TRAMACET [Suspect]
     Indication: SCIATICA
     Route: 048
  2. ADVAIR DISKUS 100/50 [Concomitant]
  3. FOSAMAX [Concomitant]
  4. LISINOPRIL [Concomitant]
     Route: 048
  5. LIPITOR [Concomitant]
     Route: 048
  6. NIZATIDINE [Concomitant]
     Route: 048
  7. CELEBREX [Concomitant]
     Route: 048
  8. AGGRENOX [Concomitant]
     Route: 048
  9. APO-LORAZEPAM [Concomitant]
     Route: 048

REACTIONS (4)
  - CONFUSIONAL STATE [None]
  - DIZZINESS [None]
  - FALL [None]
  - HALLUCINATION [None]
